FAERS Safety Report 6615103-0 (Version None)
Quarter: 2010Q1

REPORT INFORMATION
  Report Type: 
  Country: None (occurrence: None)
  Receive Date: 20100305
  Receipt Date: 20100301
  Transmission Date: 20100710
  Serious: Yes (Life-Threatening, Other)
  Sender: FDA-Public Use
  Company Number: GB-ASTRAZENECA-2009GB00877

PATIENT
  Age: 64 Year
  Sex: Male
  Weight: 80 kg

DRUGS (6)
  1. MERONEM [Suspect]
     Indication: SEPSIS
     Route: 042
     Dates: start: 20081222, end: 20081223
  2. NORADRENALINE [Concomitant]
     Dosage: THROUGHOUT ITU STAY
     Route: 042
     Dates: start: 20081201, end: 20090101
  3. PROPOFOL [Concomitant]
     Dosage: THROUGHOUT ITU STAY
     Route: 042
     Dates: start: 20081201, end: 20090101
  4. FENTANYL [Concomitant]
     Dosage: THROUGHOUT ITU STAY
     Route: 042
     Dates: start: 20081201, end: 20090101
  5. PANTOPRAZOLE [Concomitant]
     Dosage: THROUGHOUT ITU STAY
     Route: 042
     Dates: start: 20081201, end: 20090101
  6. HEPARIN [Concomitant]
     Dosage: THROUGHOUT ITU STAY
     Dates: start: 20081201, end: 20090101

REACTIONS (1)
  - INTRAVASCULAR HAEMOLYSIS [None]
